FAERS Safety Report 19863867 (Version 1)
Quarter: 2021Q3

REPORT INFORMATION
  Report Type: Spontaneous
  Country: US (occurrence: US)
  Receive Date: 20210922
  Receipt Date: 20210922
  Transmission Date: 20211014
  Serious: Yes (Other)
  Sender: FDA-Public Use
  Company Number: US-SUN PHARMACEUTICAL INDUSTRIES LTD-2021R1-311851

PATIENT
  Age: 68 Year
  Sex: Male

DRUGS (1)
  1. TAMSULOSIN [Suspect]
     Active Substance: TAMSULOSIN
     Indication: URINARY TRACT DISORDER
     Dosage: 0.4 MILLIGRAM, DAILY
     Route: 065

REACTIONS (1)
  - Blood glucose increased [Unknown]
